FAERS Safety Report 9415517 (Version 3)
Quarter: 2013Q3

REPORT INFORMATION
  Report Type: Spontaneous
  Country: DK (occurrence: DK)
  Receive Date: 20130723
  Receipt Date: 20130819
  Transmission Date: 20140515
  Serious: Yes (Hospitalization)
  Sender: FDA-Public Use
  Company Number: DK-PFIZER INC-2013211159

PATIENT
  Age: 41 Year
  Sex: Male

DRUGS (10)
  1. SOLU-MEDROL [Suspect]
     Indication: CHRONIC OBSTRUCTIVE PULMONARY DISEASE
     Dosage: 80 MG
     Dates: start: 200204
  2. PREDNISOLON [Suspect]
     Indication: CHRONIC OBSTRUCTIVE PULMONARY DISEASE
     Dosage: STARTING AT 37.5 MG AND GRADUALLY REDUCING TO 12.5 MG DAILY
     Dates: start: 200204
  3. PREDNISOLON [Suspect]
     Dosage: 20 MG DAILY, TO BE REDUCED TO 5 MG WEEKLY
     Dates: start: 20021209
  4. PREDNISOLON [Suspect]
     Dosage: 20 MG DAILY; PLANNED TO BE REDUCED OVER 4 WEEKS
     Dates: start: 20030822
  5. PREDNISOLON [Suspect]
     Dosage: 2.5 MG, DISCHARGED WITH 25 MG DAILY
     Dates: start: 20030927, end: 20031112
  6. PREDNISOLON [Suspect]
     Dosage: TREATED SPORADICALLY WITH PREDNISOLONE
  7. BRICANYL [Concomitant]
     Indication: CHRONIC OBSTRUCTIVE PULMONARY DISEASE
     Dosage: UNK
  8. KALCIFEROL [Concomitant]
     Indication: VITAMIN D DECREASED
     Dosage: INJECTION 200.000 IE
     Dates: start: 20041018
  9. CALCIUM AND VITAMIN D [Concomitant]
     Dosage: 2 TABLETS DAILY
     Dates: start: 20021208
  10. VITAMIN D [Concomitant]
     Indication: VITAMIN D DECREASED
     Dosage: 2 TABLETS DAILY
     Dates: start: 20041018

REACTIONS (8)
  - Osteonecrosis [Unknown]
  - Osteonecrosis [Unknown]
  - Hip arthroplasty [Recovered/Resolved]
  - Hip arthroplasty [Recovered/Resolved]
  - Type 1 diabetes mellitus [Not Recovered/Not Resolved]
  - Haematemesis [Unknown]
  - Hepatic enzyme increased [Unknown]
  - Arthralgia [Unknown]
